FAERS Safety Report 10590020 (Version 1)
Quarter: 2014Q4

REPORT INFORMATION
  Report Type: Spontaneous
  Country: US (occurrence: None)
  Receive Date: 20141117
  Receipt Date: 20141117
  Transmission Date: 20150529
  Serious: Yes (Life-Threatening, Hospitalization)
  Sender: FDA-Public Use
  Company Number: None

PATIENT
  Age: 81 Year
  Sex: Male
  Weight: 77.11 kg

DRUGS (2)
  1. SEROQUEL [Suspect]
     Active Substance: QUETIAPINE FUMARATE
     Indication: PSYCHOTIC DISORDER
     Dosage: 25 AM  75 PM  25 PM  THREE TIMES DAILY TAKEN BY MOUTH
     Route: 048
     Dates: start: 20141018, end: 20141114
  2. SEROQUEL [Suspect]
     Active Substance: QUETIAPINE FUMARATE
     Dosage: 25 AM  75 PM  25 PM  THREE TIMES DAILY TAKEN BY MOUTH
     Route: 048
     Dates: start: 20141018, end: 20141114

REACTIONS (9)
  - Musculoskeletal stiffness [None]
  - Eyelid function disorder [None]
  - Abasia [None]
  - Product use issue [None]
  - Hyperhidrosis [None]
  - Dysphagia [None]
  - Speech disorder [None]
  - Weight decreased [None]
  - Body temperature increased [None]

NARRATIVE: CASE EVENT DATE: 20141107
